FAERS Safety Report 14339165 (Version 1)
Quarter: 2017Q4

REPORT INFORMATION
  Report Type: Spontaneous
  Country: CN (occurrence: CN)
  Receive Date: 20171230
  Receipt Date: 20171230
  Transmission Date: 20180321
  Serious: Yes (Disabling)
  Sender: FDA-Public Use
  Company Number: CN-ROCHE-2048091

PATIENT
  Age: 36 Year
  Sex: Male
  Weight: 76 kg

DRUGS (2)
  1. TAMIFLU [Suspect]
     Active Substance: OSELTAMIVIR PHOSPHATE
     Indication: UPPER RESPIRATORY TRACT INFECTION
     Route: 048
     Dates: start: 20170904, end: 20170904
  2. IBUPROFEN. [Suspect]
     Active Substance: IBUPROFEN
     Indication: UPPER RESPIRATORY TRACT INFECTION
     Route: 048
     Dates: start: 20170904, end: 20170904

REACTIONS (1)
  - Epidermolysis bullosa [Recovering/Resolving]

NARRATIVE: CASE EVENT DATE: 20170904
